FAERS Safety Report 5622694-5 (Version None)
Quarter: 2008Q1

REPORT INFORMATION
  Report Type: 
  Country: None (occurrence: None)
  Receive Date: 20080205
  Receipt Date: 20080124
  Transmission Date: 20080703
  Serious: Yes (Other)
  Sender: FDA-Public Use
  Company Number: B0505916A

PATIENT
  Age: 31 Year
  Sex: 0

DRUGS (5)
  1. LAMIVUDINE [Suspect]
  2. CYCLOSPORINE [Concomitant]
  3. MYCOPHENOLATE MOFETIL [Concomitant]
  4. PREDNISONE TAB [Concomitant]
  5. TACROLIMUS [Concomitant]

REACTIONS (1)
  - KIDNEY TRANSPLANT REJECTION [None]
